FAERS Safety Report 4857376-0 (Version None)
Quarter: 2005Q4

REPORT INFORMATION
  Report Type: 
  Country: None (occurrence: None)
  Receive Date: 20051219
  Receipt Date: 20050228
  Transmission Date: 20060501
  Serious: No
  Sender: FDA-Public Use
  Company Number: US-GLAXOSMITHKLINE-A0547544A

PATIENT
  Age: 67 Year
  Sex: Female

DRUGS (2)
  1. NICODERM CQ [Suspect]
     Dates: start: 20050214, end: 20050221
  2. NICODERM CQ [Suspect]
     Dates: start: 20050221, end: 20050221

REACTIONS (2)
  - ANXIETY [None]
  - DYSPNOEA [None]
